FAERS Safety Report 4553141-2 (Version None)
Quarter: 2005Q1

REPORT INFORMATION
  Report Type: 
  Country: None (occurrence: None)
  Receive Date: 20050114
  Receipt Date: 20040615
  Transmission Date: 20050727
  Serious: Yes (Other)
  Sender: FDA-Public Use
  Company Number: US-GLAXOSMITHKLINE-A0516166A

PATIENT
  Age: 26 Year
  Sex: Male

DRUGS (1)
  1. PAXIL [Suspect]
     Indication: DEPRESSION
     Dosage: 10MG PER DAY
     Route: 048

REACTIONS (9)
  - ASTHENIA [None]
  - DISTURBANCE IN ATTENTION [None]
  - DIZZINESS [None]
  - DRUG WITHDRAWAL SYNDROME [None]
  - FEELING ABNORMAL [None]
  - HYPERSOMNIA [None]
  - IRRITABILITY [None]
  - SUICIDAL IDEATION [None]
  - VERTIGO [None]
